FAERS Safety Report 5006384-8 (Version None)
Quarter: 2006Q2

REPORT INFORMATION
  Report Type: 
  Country: None (occurrence: None)
  Receive Date: 20060519
  Receipt Date: 20060307
  Transmission Date: 20061013
  Serious: Yes (Other)
  Sender: FDA-Public Use
  Company Number: PHEH2006US03078

PATIENT
  Age: 66 Year
  Sex: Female
  Weight: 50.8 kg

DRUGS (13)
  1. EXJADE [Suspect]
     Indication: BLOOD IRON INCREASED
     Dosage: 1000 MG, QD
     Route: 048
     Dates: start: 20060130, end: 20060223
  2. SYNTHROID [Concomitant]
     Dosage: 0.125 MG, QD
  3. LOPRESSOR [Concomitant]
     Dosage: 12.5 MG, QD
  4. LASIX [Concomitant]
     Dosage: 10 MG/L, QD
  5. CELEBREX [Concomitant]
     Dosage: 200 MG, QD
  6. VALIUM [Concomitant]
     Dosage: 2.5 MG, PRN TID
  7. ZOLOFT [Concomitant]
     Dosage: 50 MG, QD
  8. VITAMINS NOS [Concomitant]
     Dosage: UNK, QD
  9. POTASSIUM [Concomitant]
  10. VICODIN [Concomitant]
     Dosage: 10-325, PRN
  11. MORPHINE [Concomitant]
  12. FENTANYL [Concomitant]
     Dosage: 50 NG, Q 3 DAYS
     Route: 062
  13. REVLIMID [Suspect]
     Dosage: 10 MG, QD
     Dates: start: 20060212

REACTIONS (11)
  - FATIGUE [None]
  - HAEMOGLOBIN DECREASED [None]
  - HYPOTENSION [None]
  - NAUSEA [None]
  - NEUTROPENIA [None]
  - PANCYTOPENIA [None]
  - PLATELET COUNT DECREASED [None]
  - PLATELET TRANSFUSION [None]
  - VOMITING [None]
  - WHITE BLOOD CELL COUNT DECREASED [None]
  - WHOLE BLOOD TRANSFUSION [None]
